FAERS Safety Report 6765221-1 (Version None)
Quarter: 2010Q2

REPORT INFORMATION
  Report Type: 
  Country: None (occurrence: None)
  Receive Date: 20100610
  Receipt Date: 20100610
  Transmission Date: 20101027
  Serious: No
  Sender: FDA-Public Use
  Company Number: None

PATIENT
  Sex: Male
  Weight: 79.4 kg

DRUGS (2)
  1. CASODEX [Suspect]
     Dosage: 7550 MG
  2. TAXOTERE [Suspect]
     Dosage: 150 MG

REACTIONS (1)
  - WHITE BLOOD CELL COUNT ABNORMAL [None]
